FAERS Safety Report 13061628 (Version 2)
Quarter: 2018Q4

REPORT INFORMATION
  Report Type: Spontaneous
  Country: US (occurrence: US)
  Receive Date: 20161226
  Receipt Date: 20181217
  Transmission Date: 20190204
  Serious: No
  Sender: FDA-Public Use
  Company Number: US-NOVEN PHARMACEUTICALS, INC.-US2016001938

PATIENT

DRUGS (2)
  1. MINIVELLE [Suspect]
     Active Substance: ESTRADIOL
     Indication: HORMONE REPLACEMENT THERAPY
     Dosage: 0.05 MG, 2/WK
     Route: 062
     Dates: start: 2014
  2. MINIVELLE [Suspect]
     Active Substance: ESTRADIOL
     Dosage: 0.05 MG, 2/WK
     Route: 062

REACTIONS (11)
  - Drug withdrawal syndrome [Not Recovered/Not Resolved]
  - Drug ineffective [Not Recovered/Not Resolved]
  - Blood oestrogen decreased [Unknown]
  - Product quality issue [Unknown]
  - Immune system disorder [Unknown]
  - Hot flush [Unknown]
  - Palpitations [Unknown]
  - Product adhesion issue [Unknown]
  - Inappropriate schedule of product administration [Recovered/Resolved]
  - Hyperhidrosis [Unknown]
  - Off label use [Not Recovered/Not Resolved]

NARRATIVE: CASE EVENT DATE: 2014
